FAERS Safety Report 4672791-6 (Version None)
Quarter: 2005Q2

REPORT INFORMATION
  Report Type: 
  Country: None (occurrence: None)
  Receive Date: 20050524
  Receipt Date: 20040608
  Transmission Date: 20051028
  Serious: Yes (Hospitalization)
  Sender: FDA-Public Use
  Company Number: GB-BRISTOL-MYERS SQUIBB COMPANY-12608063

PATIENT
  Age: 37 Year
  Sex: Female
  Weight: 79 kg

DRUGS (1)
  1. PACLITAXEL [Suspect]
     Indication: BREAST CANCER
     Route: 042
     Dates: start: 20040319, end: 20040319

REACTIONS (5)
  - ARTHRALGIA [None]
  - BONE PAIN [None]
  - CATHETER RELATED INFECTION [None]
  - NEUTROPENIA [None]
  - SEPSIS [None]
